FAERS Safety Report 5431980-3 (Version None)
Quarter: 2007Q3

REPORT INFORMATION
  Report Type: 
  Country: None (occurrence: None)
  Receive Date: 20070830
  Receipt Date: 20070822
  Transmission Date: 20080115
  Serious: Yes (Other)
  Sender: FDA-Public Use
  Company Number: US-PFIZER INC-2007070203

PATIENT
  Age: 75 Year
  Sex: Male

DRUGS (2)
  1. FRAGMIN [Suspect]
     Dosage: TEXT:UNKNOWN
     Route: 058
     Dates: start: 20070301, end: 20070301
  2. ANTIBIOTICS [Concomitant]

REACTIONS (1)
  - DEEP VEIN THROMBOSIS [None]
